FAERS Safety Report 10653582 (Version 1)
Quarter: 2014Q4

REPORT INFORMATION
  Report Type: Spontaneous
  Country: US (occurrence: US)
  Receive Date: 20141216
  Receipt Date: 20141216
  Transmission Date: 20150529
  Serious: Yes (Other)
  Sender: FDA-Public Use
  Company Number: US-ASTRAZENECA-2014SE94713

PATIENT
  Sex: Female

DRUGS (7)
  1. BUDESONIDE. [Suspect]
     Active Substance: BUDESONIDE
     Indication: BARRETT^S OESOPHAGUS
     Route: 048
     Dates: start: 201404
  2. BUDESONIDE. [Suspect]
     Active Substance: BUDESONIDE
     Indication: GASTROENTERITIS
     Route: 048
     Dates: start: 201404
  3. AMBIEN [Concomitant]
     Active Substance: ZOLPIDEM TARTRATE
     Indication: SLEEP DISORDER
     Route: 048
  4. ELMITRICA [Concomitant]
     Indication: CYSTITIS INTERSTITIAL
     Route: 048
  5. DEXILANG DR [Concomitant]
     Indication: GASTROOESOPHAGEAL REFLUX DISEASE
     Route: 048
  6. APRISO [Concomitant]
     Active Substance: MESALAMINE
     Dates: start: 201410
  7. BUDESONIDE. [Suspect]
     Active Substance: BUDESONIDE
     Indication: GASTROINTESTINAL INFLAMMATION
     Route: 048
     Dates: start: 201404

REACTIONS (4)
  - Swelling [Unknown]
  - Mass [Unknown]
  - Skin atrophy [Unknown]
  - Product use issue [Unknown]
